FAERS Safety Report 5572897-3 (Version None)
Quarter: 2007Q4

REPORT INFORMATION
  Report Type: 
  Country: None (occurrence: None)
  Receive Date: 20071224
  Receipt Date: 20071218
  Transmission Date: 20080405
  Serious: Yes (Other)
  Sender: FDA-Public Use
  Company Number: DK-NOVOPROD-270117

PATIENT
  Age: 63 Year
  Sex: Female
  Weight: 63 kg

DRUGS (6)
  1. LEVEMIR [Suspect]
     Indication: INSULIN-REQUIRING TYPE II DIABETES MELLITUS
     Dates: start: 20071003, end: 20071023
  2. LEVEMIR [Suspect]
     Dosage: INCREASED TO 10 IU, QD
     Dates: start: 20071003
  3. LEVEMIR [Suspect]
     Dosage: DECREASED TO 6 IU, QD
     Dates: end: 20071022
  4. LEVEMIR [Suspect]
     Dosage: INCREASED TO 7 IU, QD
     Dates: start: 20071022, end: 20071023
  5. NOVO-RAPID [Concomitant]
     Dates: start: 20070425
  6. SIMVASTATIN [Concomitant]

REACTIONS (2)
  - FEELING ABNORMAL [None]
  - HEADACHE [None]
